FAERS Safety Report 5466049-5 (Version None)
Quarter: 2007Q3

REPORT INFORMATION
  Report Type: 
  Country: None (occurrence: None)
  Receive Date: 20070919
  Receipt Date: 20070911
  Transmission Date: 20080115
  Serious: Yes (Hospitalization)
  Sender: FDA-Public Use
  Company Number: 229-C5013-07050002

PATIENT
  Age: 74 Year
  Sex: Male
  Weight: 109.2 kg

DRUGS (25)
  1. CC-5013 (LENALIDOMIDE) (CAPSULES) [Suspect]
     Indication: MULTIPLE MYELOMA
     Dosage: 25 MG, DAILY FOR 21 DAYS EVERY 28 DAYS, ORAL; 25 MG, DAILY FOR 21 DAYS EVERY 28 DAYS, ORAL
     Route: 048
     Dates: start: 20070416, end: 20070428
  2. CC-5013 (LENALIDOMIDE) (CAPSULES) [Suspect]
     Indication: MULTIPLE MYELOMA
     Dosage: 25 MG, DAILY FOR 21 DAYS EVERY 28 DAYS, ORAL; 25 MG, DAILY FOR 21 DAYS EVERY 28 DAYS, ORAL
     Route: 048
     Dates: start: 20070606
  3. DEXAMETHASONE TAB [Suspect]
     Indication: MULTIPLE MYELOMA
     Dosage: 40 MG, DAYS 1-4, 9-12, 17-20 EVERY 28 DAYS, ORAL
     Route: 048
     Dates: start: 20070416
  4. DILZEM SR (DILTIAZEM HYDROCHLORIDE) [Concomitant]
  5. ISOMEL [Concomitant]
  6. ACEOMEL (CAPTOPRIL) [Concomitant]
  7. ZOCOR [Concomitant]
  8. SEROXAT (PAROXETINE) [Concomitant]
  9. ENOXAPARIN SODIUM [Concomitant]
  10. PERINDOPRIL ERBUMINE [Concomitant]
  11. COMBIVENT [Concomitant]
  12. CALCICHEW D3 FORTE (LEKOVIT CA) [Concomitant]
  13. BACTRIM [Concomitant]
  14. ZOTON (LANSOPRAZOLE) [Concomitant]
  15. MYCOSTATIN [Concomitant]
  16. WARFARIN SODIUM [Concomitant]
  17. FLOVENT [Concomitant]
  18. DIFLUCAN [Concomitant]
  19. VALTREX [Concomitant]
  20. ZOMETA [Concomitant]
  21. ASPIRIN [Concomitant]
  22. ISOSORBIDE (ISOSORBIDE) [Concomitant]
  23. TAROSIN (ASCORUTIN) [Concomitant]
  24. PHYTONADIONE [Concomitant]
  25. ACETYLCYSTEINE [Concomitant]

REACTIONS (3)
  - ACUTE CORONARY SYNDROME [None]
  - DIZZINESS [None]
  - LEFT VENTRICULAR DYSFUNCTION [None]
